FAERS Safety Report 5897711-8 (Version None)
Quarter: 2008Q3

REPORT INFORMATION
  Report Type: 
  Country: None (occurrence: None)
  Receive Date: 20080924
  Receipt Date: 20080924
  Transmission Date: 20090109
  Serious: No
  Sender: FDA-Public Use
  Company Number: None

PATIENT
  Age: 37 Year
  Sex: Female
  Weight: 57.1532 kg

DRUGS (2)
  1. METOPROLOL SUCCINATE 100MG ER TAB ASTZEN LP [Suspect]
     Indication: HYPERTENSION
     Dosage: 100MG 1 PER DAY PO
     Route: 048
     Dates: start: 20080601, end: 20080923
  2. METOPROLOL SUCCINATE 100MG ER TAB ASTZEN LP [Suspect]
     Indication: PALPITATIONS
     Dosage: 100MG 1 PER DAY PO
     Route: 048
     Dates: start: 20080601, end: 20080923

REACTIONS (5)
  - BLOOD PRESSURE INCREASED [None]
  - DRUG INEFFECTIVE [None]
  - HEART RATE IRREGULAR [None]
  - PALPITATIONS [None]
  - THERAPEUTIC RESPONSE UNEXPECTED WITH DRUG SUBSTITUTION [None]
